FAERS Safety Report 9252675 (Version 2)
Quarter: 2013Q2

REPORT INFORMATION
  Report Type: Spontaneous
  Country: BR (occurrence: BR)
  Receive Date: 20130424
  Receipt Date: 20130516
  Transmission Date: 20140414
  Serious: Yes (Other)
  Sender: FDA-Public Use
  Company Number: BR-ELI_LILLY_AND_COMPANY-BR201304005189

PATIENT
  Age: 72 Year
  Sex: Female
  Weight: 63 kg

DRUGS (3)
  1. HUMULIN NPH [Suspect]
     Indication: TYPE 2 DIABETES MELLITUS
     Dosage: UNK, EACH MORNING
     Route: 065
     Dates: start: 201302
  2. GLIFAGE [Concomitant]
     Dosage: 500 MG, TID
     Route: 065
  3. DAONIL [Concomitant]
     Dosage: UNK, TID
     Route: 065

REACTIONS (3)
  - Kidney infection [Recovered/Resolved]
  - Blood glucose increased [Recovered/Resolved]
  - Medication error [Unknown]
